APPROVED DRUG PRODUCT: CEVIMELINE HYDROCHLORIDE
Active Ingredient: CEVIMELINE HYDROCHLORIDE
Strength: 30MG
Dosage Form/Route: CAPSULE;ORAL
Application: A091260 | Product #001
Applicant: APOTEX INC
Approved: Aug 25, 2011 | RLD: No | RS: No | Type: DISCN